FAERS Safety Report 24746890 (Version 1)
Quarter: 2024Q4

REPORT INFORMATION
  Report Type: Spontaneous
  Country: US (occurrence: US)
  Receive Date: 20241218
  Receipt Date: 20241218
  Transmission Date: 20250115
  Serious: No
  Sender: FDC LIMITED
  Company Number: US-FDC-2024USSPO00796

PATIENT

DRUGS (2)
  1. TIMOLOL MALEATE [Suspect]
     Active Substance: TIMOLOL MALEATE
     Indication: Glaucoma
     Route: 065
     Dates: end: 20240822
  2. TIMOLOL MALEATE [Suspect]
     Active Substance: TIMOLOL MALEATE
     Route: 065

REACTIONS (5)
  - Swelling of eyelid [Unknown]
  - Erythema of eyelid [Unknown]
  - Eyelid margin crusting [Unknown]
  - Eye pain [Unknown]
  - Product quality issue [Unknown]

NARRATIVE: CASE EVENT DATE: 20240707
